FAERS Safety Report 6197094-2 (Version None)
Quarter: 2009Q2

REPORT INFORMATION
  Report Type: 
  Country: None (occurrence: None)
  Receive Date: 20090518
  Receipt Date: 20090518
  Transmission Date: 20091009
  Serious: Yes (Hospitalization)
  Sender: FDA-Public Use
  Company Number: None

PATIENT
  Age: 57 Year
  Sex: Female
  Weight: 79.3 kg

DRUGS (3)
  1. SORAFENIB/BAYER 200 MG [Suspect]
     Indication: PANCREATIC CARCINOMA METASTATIC
     Dosage: 200 MG PO DAILY CONT
     Route: 048
     Dates: start: 20090304, end: 20090514
  2. OXALIPLATIN [Suspect]
     Dosage: 120 MG IV Q 2 WEEKS
     Route: 042
     Dates: start: 20090304, end: 20090504
  3. CAPECITABINE [Concomitant]

REACTIONS (2)
  - ABDOMINAL PAIN UPPER [None]
  - PULMONARY EMBOLISM [None]
